FAERS Safety Report 4827813-6 (Version None)
Quarter: 2005Q4

REPORT INFORMATION
  Report Type: 
  Country: None (occurrence: None)
  Receive Date: 20051114
  Receipt Date: 20051114
  Transmission Date: 20060501
  Serious: Yes (Hospitalization)
  Sender: FDA-Public Use
  Company Number: None

PATIENT
  Sex: Male
  Weight: 106.5953 kg

DRUGS (2)
  1. INTEGRILIN [Suspect]
     Indication: ACUTE CORONARY SYNDROME
     Dosage: 180 MCG/KG   OTO    IV BOLUS
     Route: 040
     Dates: start: 20050819, end: 20050819
  2. INTEGRILIN [Suspect]
     Indication: ACUTE CORONARY SYNDROME
     Dosage: 2 MCG/KG/MIN   CONTINUOUS INF   IV DRIP
     Route: 041
     Dates: start: 20050819, end: 20050821

REACTIONS (1)
  - PLATELET COUNT DECREASED [None]
